FAERS Safety Report 5771469-5 (Version None)
Quarter: 2008Q2

REPORT INFORMATION
  Report Type: 
  Country: None (occurrence: None)
  Receive Date: 20080613
  Receipt Date: 20080610
  Transmission Date: 20081010
  Serious: Yes (Death)
  Sender: FDA-Public Use
  Company Number: FR-AVENTIS-200811833FR

PATIENT
  Age: 65 Year
  Sex: Female

DRUGS (4)
  1. LOVENOX [Suspect]
     Route: 042
     Dates: start: 20080319, end: 20080409
  2. LOVENOX [Suspect]
     Route: 042
     Dates: start: 20080418, end: 20080420
  3. ROCEPHIN [Suspect]
     Route: 042
     Dates: start: 20080329, end: 20080409
  4. VANCOMYCIN HCL [Suspect]
     Route: 042
     Dates: start: 20080401, end: 20080411

REACTIONS (1)
  - THROMBOCYTOPENIA [None]
